FAERS Safety Report 9768947 (Version 3)
Quarter: 2015Q4

REPORT INFORMATION
  Report Type: Report from Study
  Country: US (occurrence: US)
  Receive Date: 20131218
  Receipt Date: 20151113
  Transmission Date: 20160305
  Serious: Yes (Other)
  Sender: FDA-Public Use
  Company Number: US-ROCHE-1314403

PATIENT
  Sex: Male

DRUGS (17)
  1. IBUPROFEN. [Concomitant]
     Active Substance: IBUPROFEN
     Route: 048
  2. SODIUM CHLORIDE. [Concomitant]
     Active Substance: SODIUM CHLORIDE
     Dosage: 0.9% IRRIGATION
     Route: 065
  3. KLOR-CON M20 [Concomitant]
     Active Substance: POTASSIUM CHLORIDE
     Route: 048
  4. FUROSEMIDE. [Concomitant]
     Active Substance: FUROSEMIDE
     Route: 065
  5. SYNTHROID [Concomitant]
     Active Substance: LEVOTHYROXINE SODIUM
     Route: 065
  6. ACETAMINOPHEN AND CODEINE [Suspect]
     Active Substance: ACETAMINOPHEN\CODEINE PHOSPHATE
     Indication: PRODUCT USED FOR UNKNOWN INDICATION
     Route: 048
  7. AVASTIN [Suspect]
     Active Substance: BEVACIZUMAB
     Indication: DIABETIC RETINAL OEDEMA
     Route: 050
     Dates: start: 20130822
  8. BETADINE [Concomitant]
     Active Substance: POVIDONE-IODINE
     Route: 065
  9. LIDOCAINE. [Concomitant]
     Active Substance: LIDOCAINE
     Route: 065
  10. AVASTIN [Suspect]
     Active Substance: BEVACIZUMAB
     Indication: DIABETIC RETINOPATHY
     Route: 050
     Dates: start: 20101130
  11. LUCENTIS [Suspect]
     Active Substance: RANIBIZUMAB
     Indication: DIABETIC RETINAL OEDEMA
     Route: 050
     Dates: start: 20140108
  12. LISINOPRIL. [Concomitant]
     Active Substance: LISINOPRIL
     Route: 065
  13. LUCENTIS [Suspect]
     Active Substance: RANIBIZUMAB
     Indication: NEOVASCULAR AGE-RELATED MACULAR DEGENERATION
  14. LUCENTIS [Suspect]
     Active Substance: RANIBIZUMAB
     Indication: DIABETIC EYE DISEASE
  15. NOVOLOG [Concomitant]
     Active Substance: INSULIN ASPART
     Dosage: 100 UNITS PER ML
     Route: 058
  16. LEVEMIR [Concomitant]
     Active Substance: INSULIN DETEMIR
     Dosage: 100 UNITS PER ML
     Route: 058
  17. SILVER SULFADIAZINE CREAM [Concomitant]
     Active Substance: SILVER SULFADIAZINE
     Route: 061

REACTIONS (20)
  - Cystoid macular oedema [Unknown]
  - Joint stiffness [Unknown]
  - Retinal exudates [Unknown]
  - Visual acuity reduced [Unknown]
  - Photopsia [Unknown]
  - Skin ulcer [Unknown]
  - Macular fibrosis [Unknown]
  - Diabetic retinopathy [Unknown]
  - Metamorphopsia [Unknown]
  - Arthralgia [Unknown]
  - Cataract nuclear [Unknown]
  - Cataract subcapsular [Unknown]
  - Ophthalmological examination abnormal [Unknown]
  - Eye pain [Unknown]
  - Vision blurred [Unknown]
  - Ischaemia [Unknown]
  - Retinal vascular disorder [Unknown]
  - Vitreous floaters [Unknown]
  - Pupillary reflex impaired [Unknown]
  - Macular pseudohole [Unknown]
